FAERS Safety Report 5330467-6 (Version None)
Quarter: 2007Q2

REPORT INFORMATION
  Report Type: 
  Country: None (occurrence: None)
  Receive Date: 20070521
  Receipt Date: 20070516
  Transmission Date: 20071010
  Serious: Yes (Death)
  Sender: FDA-Public Use
  Company Number: US-GENENTECH-235425

PATIENT
  Sex: Female

DRUGS (8)
  1. RANIBIZUMAB [Suspect]
     Indication: MACULAR DEGENERATION
     Dosage: UNK, UNK
     Route: 031
     Dates: start: 20060620
  2. ASPIRIN [Concomitant]
     Indication: CARDIOVASCULAR DISORDER
     Dosage: UNK, UNK
     Dates: start: 20050101
  3. FERROUS SULFATE TAB [Concomitant]
     Indication: ANAEMIA
     Dosage: UNK, UNK
     Dates: start: 20060101
  4. FOLIC ACID [Concomitant]
     Indication: ANAEMIA
     Dosage: UNK, UNK
     Dates: start: 20060101
  5. CELEBREX [Concomitant]
     Indication: OSTEOARTHRITIS
     Dates: start: 19940101
  6. QUINAPRIL [Concomitant]
     Indication: HYPERTENSION
     Dates: start: 20050101
  7. METHOTREXATE [Concomitant]
     Indication: RHEUMATOID ARTHRITIS
     Dates: start: 20060710, end: 20060807
  8. ACCUPRIL [Concomitant]
     Indication: HYPERTENSION
     Dates: start: 20050101

REACTIONS (1)
  - PANCREATIC CARCINOMA [None]
